FAERS Safety Report 7343690-6 (Version None)
Quarter: 2011Q1

REPORT INFORMATION
  Report Type: 
  Country: None (occurrence: None)
  Receive Date: 20110310
  Receipt Date: 20101027
  Transmission Date: 20110831
  Serious: No
  Sender: FDA-Public Use
  Company Number: A0889055A

PATIENT
  Age: 61 Year

DRUGS (1)
  1. NICOTINE POLACRILEX [Suspect]
     Route: 002
     Dates: start: 20090101, end: 20090101

REACTIONS (1)
  - ORAL DISCOMFORT [None]
